FAERS Safety Report 23027757 (Version 24)
Quarter: 2025Q2

REPORT INFORMATION
  Report Type: Spontaneous
  Country: DE (occurrence: DE)
  Receive Date: 20231004
  Receipt Date: 20250423
  Transmission Date: 20250716
  Serious: Yes (Life-Threatening, Other)
  Sender: SANDOZ
  Company Number: DE-002147023-NVSC2020DE162883

PATIENT
  Age: 73 Year
  Sex: Female
  Weight: 73 kg

DRUGS (63)
  1. FULVESTRANT [Suspect]
     Active Substance: FULVESTRANT
     Dosage: 500 MG, Q4W
     Route: 030
     Dates: end: 20210715
  2. FULVESTRANT [Suspect]
     Active Substance: FULVESTRANT
     Dosage: 500 MG, Q4W
     Route: 030
  3. FULVESTRANT [Suspect]
     Active Substance: FULVESTRANT
     Dosage: 500 MG, Q4W
     Route: 065
     Dates: end: 20210715
  4. FULVESTRANT [Suspect]
     Active Substance: FULVESTRANT
     Dosage: 500 MG, Q4W (500 MG, Q4W (DAILY DOSE)  (LAST ADMINISTRATION DOSE DATE WAS  02JUL2020))
     Route: 030
     Dates: end: 20200702
  5. FULVESTRANT [Suspect]
     Active Substance: FULVESTRANT
     Dosage: 500 MG, Q4W (500 MG, Q4W (DAILY DOSE)  (LAST ADMINISTRATION DOSE DATE WAS  02JUL2020))
     Route: 030
     Dates: end: 20200702
  6. FULVESTRANT [Suspect]
     Active Substance: FULVESTRANT
     Dosage: 500 MG, Q4W (500 MG, Q4W (DAILY DOSE)  (LAST ADMINISTRATION DOSE DATE WAS  02JUL2020))
     Route: 030
  7. FULVESTRANT [Suspect]
     Active Substance: FULVESTRANT
     Dosage: 500 MG, Q4W (500 MG, Q4W (DAILY DOSE) (LAST ADMINISTRATION DOSE DATE WAS 02JUL2020))
     Route: 030
     Dates: end: 20200702
  8. FULVESTRANT [Suspect]
     Active Substance: FULVESTRANT
     Dosage: 500 MG, Q4W (500 MG, Q4W (DAILY DOSE) (LAST ADMINISTRATION DOSE DATE WAS 02JUL2020))
     Route: 030
     Dates: end: 20200702
  9. FULVESTRANT [Suspect]
     Active Substance: FULVESTRANT
     Dosage: 500 MG, Q4W (DAILY DOSE)
     Route: 030
     Dates: end: 20200715
  10. FULVESTRANT [Suspect]
     Active Substance: FULVESTRANT
     Dosage: 500 MG, Q4W (DAILY DOSE) (LAST ADMINISTRATION DOSE DATE WAS 02JUL2020), START DATE: 11-APR-2020
     Route: 030
     Dates: end: 20200702
  11. FULVESTRANT [Suspect]
     Active Substance: FULVESTRANT
     Dosage: 500 MG, Q4W (START DATE: 15-JUL-2021))
     Route: 030
     Dates: end: 20210715
  12. FULVESTRANT [Suspect]
     Active Substance: FULVESTRANT
     Dosage: 500 MG, EVERY 4 WEEKS, START DATE: 15-JUL-2021
     Route: 065
     Dates: end: 20210715
  13. FULVESTRANT [Suspect]
     Active Substance: FULVESTRANT
     Dosage: 500 MG, EVERY 4 WEEKS, START DATE; 15-JUL-2020
     Route: 030
     Dates: end: 20200715
  14. FULVESTRANT [Suspect]
     Active Substance: FULVESTRANT
     Indication: Hormone receptor positive HER2 negative breast cancer
     Route: 030
     Dates: end: 20210715
  15. FULVESTRANT [Suspect]
     Active Substance: FULVESTRANT
     Route: 065
     Dates: end: 20210715
  16. FULVESTRANT [Suspect]
     Active Substance: FULVESTRANT
     Route: 030
     Dates: end: 20200715
  17. FULVESTRANT [Suspect]
     Active Substance: FULVESTRANT
     Route: 065
     Dates: end: 20210715
  18. PALBOCICLIB [Suspect]
     Active Substance: PALBOCICLIB
     Dosage: 100 MG, CYCLIC, START DATE: 12-SEP-2020 (QD, 21 DAYS INTAKE, 7 DAYS PAUSE)
     Route: 048
     Dates: end: 20210624
  19. PALBOCICLIB [Suspect]
     Active Substance: PALBOCICLIB
     Dosage: 100 MG, QD
     Route: 048
     Dates: end: 20210624
  20. PALBOCICLIB [Suspect]
     Active Substance: PALBOCICLIB
     Dosage: 100 MG, QD
     Route: 048
     Dates: end: 20210729
  21. PALBOCICLIB [Suspect]
     Active Substance: PALBOCICLIB
     Dosage: 100 MG,QD, CYCLIC, START DATE: 02-JUL-2021 (SCHEMA 21 DAYS INTAKE, 7 DAYS PAUSE)
     Route: 048
     Dates: end: 20210729
  22. PALBOCICLIB [Suspect]
     Active Substance: PALBOCICLIB
     Dosage: 125 MG, CYCLIC, START DATE:06-AUG-2021 (ONCE A DAY, SCHEMA 21 DAYS INTAKE, 7 DAYS PAUSE)
     Route: 048
  23. PALBOCICLIB [Suspect]
     Active Substance: PALBOCICLIB
     Dosage: 125 MG, QD
     Route: 048
     Dates: end: 20200821
  24. PALBOCICLIB [Suspect]
     Active Substance: PALBOCICLIB
     Indication: Breast cancer metastatic
     Dosage: 125 MG, QD, START DATE: 01-AUG-2020, CYCLIC (FROM 01 AUG 2020, 21 DAYS INTAKE, 7 DAYS PAUSE)
     Route: 048
     Dates: end: 20200821
  25. PALBOCICLIB [Suspect]
     Active Substance: PALBOCICLIB
     Route: 048
     Dates: end: 20210729
  26. PALBOCICLIB [Suspect]
     Active Substance: PALBOCICLIB
     Route: 048
     Dates: end: 20210624
  27. PALBOCICLIB [Suspect]
     Active Substance: PALBOCICLIB
     Dosage: 75 MG, QD
     Route: 048
     Dates: end: 20240808
  28. PALBOCICLIB [Suspect]
     Active Substance: PALBOCICLIB
     Dosage: 75 MG, QD,CYCLIC, START DATE: 06-AUG-2021 (SCHEMA 21 DAYS INTAKE, 7 DAYS PAUSE)
     Route: 048
     Dates: end: 20240808
  29. RIBOCICLIB [Suspect]
     Active Substance: RIBOCICLIB
     Indication: Breast cancer metastatic
     Dosage: 400 MG, QD
     Route: 048
     Dates: end: 20200715
  30. RIBOCICLIB [Suspect]
     Active Substance: RIBOCICLIB
     Dosage: 400 MG, QD (400 MG, QD (SCHEMA 21 DAYS INTAKE, THAN 7 DAYS PAUSE)  )
     Route: 048
     Dates: end: 20200715
  31. RIBOCICLIB [Suspect]
     Active Substance: RIBOCICLIB
     Indication: Hormone receptor positive HER2 negative breast cancer
     Dosage: 400 MG, QD (SCHEMA 21 DAYS INTAKE, THAN 7 DAYS PAUSE)
     Route: 048
     Dates: end: 20200715
  32. RIBOCICLIB [Suspect]
     Active Substance: RIBOCICLIB
     Route: 048
     Dates: end: 20200725
  33. RIBOCICLIB [Suspect]
     Active Substance: RIBOCICLIB
     Route: 048
  34. RIBOCICLIB [Suspect]
     Active Substance: RIBOCICLIB
     Route: 048
     Dates: end: 20200725
  35. RIBOCICLIB [Suspect]
     Active Substance: RIBOCICLIB
     Route: 048
     Dates: end: 20200525
  36. RIBOCICLIB [Suspect]
     Active Substance: RIBOCICLIB
     Route: 048
     Dates: end: 20200525
  37. RIBOCICLIB [Suspect]
     Active Substance: RIBOCICLIB
     Route: 048
  38. CANDESARTAN [Concomitant]
     Active Substance: CANDESARTAN
     Dosage: 16 MG, QD (16 MG, QD (ONCE IN THE MORNING))
     Route: 048
     Dates: start: 20190815, end: 20200525
  39. CANDESARTAN [Concomitant]
     Active Substance: CANDESARTAN
     Indication: Hypertension
     Dosage: 16 MG, QD (ONCE IN THE MORNING)
     Route: 048
     Dates: start: 20200411, end: 20200525
  40. CANDESARTAN [Concomitant]
     Active Substance: CANDESARTAN
     Dosage: 16 MG, QD (ONCE IN THE MORNING)
     Route: 048
     Dates: start: 20190815, end: 20200525
  41. CANDESARTAN [Concomitant]
     Active Substance: CANDESARTAN
     Dosage: 16 MG, QD (ONCE IN THE MORNING)
     Route: 048
     Dates: start: 20190815, end: 20200525
  42. CANDESARTAN [Concomitant]
     Active Substance: CANDESARTAN
     Dosage: 16 MG, QD (ONCE IN THE MORNING)
     Route: 048
     Dates: start: 20190815, end: 20200525
  43. CANDESARTAN [Concomitant]
     Active Substance: CANDESARTAN
     Dosage: 16 MG, QD (ONCE IN THE MORNING)
     Route: 048
     Dates: start: 20200411, end: 20200525
  44. CANDESARTAN [Concomitant]
     Active Substance: CANDESARTAN
     Dosage: 16 MG, QD (ONCE IN THE MORNING)
     Route: 048
     Dates: start: 20200411, end: 20200525
  45. CANDESARTAN [Concomitant]
     Active Substance: CANDESARTAN
     Dosage: UNK (16 MG, QD (ONCE IN THE MORNING))
     Route: 048
     Dates: start: 20200411, end: 20200525
  46. LEVOTHYROXINE [Concomitant]
     Active Substance: LEVOTHYROXINE
     Route: 048
     Dates: start: 20200411, end: 20200525
  47. LEVOTHYROXINE [Concomitant]
     Active Substance: LEVOTHYROXINE
     Route: 048
     Dates: start: 20200411, end: 20200525
  48. LEVOTHYROXINE [Concomitant]
     Active Substance: LEVOTHYROXINE
     Route: 048
     Dates: start: 20200411, end: 20200525
  49. LEVOTHYROXINE [Concomitant]
     Active Substance: LEVOTHYROXINE
     Route: 048
     Dates: start: 20200411, end: 20200525
  50. LEVOTHYROXINE [Concomitant]
     Active Substance: LEVOTHYROXINE
     Route: 048
     Dates: start: 20200411, end: 20200525
  51. LEVOTHYROXINE [Concomitant]
     Active Substance: LEVOTHYROXINE
     Indication: Hypothyroidism
     Route: 048
     Dates: start: 20200411, end: 20200525
  52. LEVOTHYROXINE [Concomitant]
     Active Substance: LEVOTHYROXINE
     Route: 048
     Dates: start: 20200411, end: 20200525
  53. LEVOTHYROXINE [Concomitant]
     Active Substance: LEVOTHYROXINE
     Route: 048
     Dates: start: 20200411, end: 20200525
  54. LEVOTHYROXINE [Concomitant]
     Active Substance: LEVOTHYROXINE
     Route: 048
     Dates: start: 20200914
  55. LEVOTHYROXINE [Concomitant]
     Active Substance: LEVOTHYROXINE
     Route: 048
     Dates: start: 20200914
  56. LEVOTHYROXINE [Concomitant]
     Active Substance: LEVOTHYROXINE
     Route: 048
     Dates: start: 20200914
  57. LEVOTHYROXINE [Concomitant]
     Active Substance: LEVOTHYROXINE
     Route: 048
     Dates: start: 20200914
  58. LEVOTHYROXINE [Concomitant]
     Active Substance: LEVOTHYROXINE
     Route: 065
     Dates: start: 20200914
  59. LEVOTHYROXINE [Concomitant]
     Active Substance: LEVOTHYROXINE
     Route: 065
  60. ZOMETA [Concomitant]
     Active Substance: ZOLEDRONIC ACID
     Dosage: 4 MG, Q4W (4 MG, CYCLIC (EVERY 4 WEEKS
     Route: 042
     Dates: start: 20200411, end: 20200525
  61. ZOMETA [Concomitant]
     Active Substance: ZOLEDRONIC ACID
     Dosage: 4 MG, Q4W (4 MG, CYCLIC (EVERY 4 WEEKS)
     Route: 042
     Dates: start: 20200411, end: 20200525
  62. ZOMETA [Concomitant]
     Active Substance: ZOLEDRONIC ACID
     Indication: Product used for unknown indication
     Dosage: 4 MG, CYCLIC, (EVERY 4 WEEKS)
     Route: 042
     Dates: start: 20200411, end: 20200525
  63. ZOMETA [Concomitant]
     Active Substance: ZOLEDRONIC ACID
     Route: 065

REACTIONS (17)
  - Neutropenia [Recovered/Resolved]
  - Neutropenia [Recovered/Resolved]
  - Neutropenia [Recovered/Resolved]
  - Neutropenia [Recovered/Resolved]
  - Neutropenia [Recovered/Resolved]
  - Neutropenia [Recovered/Resolved]
  - Neutropenia [Recovered/Resolved]
  - Thrombocytopenia [Recovered/Resolved]
  - Joint stiffness [Not Recovered/Not Resolved]
  - Pulpitis dental [Recovered/Resolved]
  - Dyspepsia [Recovered/Resolved]
  - Abdominal pain [Recovered/Resolved]
  - Alanine aminotransferase increased [Recovered/Resolved]
  - Fatigue [Not Recovered/Not Resolved]
  - Back pain [Not Recovered/Not Resolved]
  - Diarrhoea [Recovered/Resolved]
  - Aspartate aminotransferase increased [Recovered/Resolved]

NARRATIVE: CASE EVENT DATE: 20200522
